FAERS Safety Report 20208497 (Version 2)
Quarter: 2022Q1

REPORT INFORMATION
  Report Type: Spontaneous
  Country: US (occurrence: US)
  Receive Date: 20211220
  Receipt Date: 20220113
  Transmission Date: 20220423
  Serious: Yes (Other)
  Sender: FDA-Public Use
  Company Number: US-TEVA-2021-US-1989808

PATIENT
  Age: 19 Year
  Sex: Female

DRUGS (3)
  1. PREDNISONE [Suspect]
     Active Substance: PREDNISONE
     Indication: Enteritis
     Dosage: 40 MILLIGRAM DAILY;
     Route: 065
  2. AZATHIOPRINE [Suspect]
     Active Substance: AZATHIOPRINE
     Indication: Crohn^s disease
     Dosage: WEIGHT-BASED AZATHIOPRINE; STARTED ONE YEAR PRIOR TO THE CURRENT PRESENTATION
     Route: 065
  3. ADALIMUMAB [Suspect]
     Active Substance: ADALIMUMAB
     Indication: Crohn^s disease
     Dosage: RECEIVING FOR 7 YEARS ONCE WEEKLY
     Route: 065

REACTIONS (2)
  - Histoplasmosis disseminated [Unknown]
  - Treatment failure [Unknown]
